FAERS Safety Report 4405622-X (Version None)
Quarter: 2004Q3

REPORT INFORMATION
  Report Type: 
  Country: None (occurrence: None)
  Receive Date: 20040723
  Receipt Date: 20031021
  Transmission Date: 20050211
  Serious: No
  Sender: FDA-Public Use
  Company Number: US-GLAXOSMITHKLINE-A0430988A

PATIENT
  Age: 79 Year
  Sex: Female

DRUGS (6)
  1. AVANDIA [Suspect]
     Dosage: 1TAB PER DAY
     Route: 048
     Dates: start: 20031002
  2. LOTREL [Concomitant]
  3. TOPROL-XL [Concomitant]
  4. PLAVIX [Concomitant]
  5. PEPCID [Concomitant]
  6. TYLENOL [Concomitant]

REACTIONS (4)
  - DYSPNOEA [None]
  - JOINT SWELLING [None]
  - OEDEMA PERIPHERAL [None]
  - WEIGHT INCREASED [None]
